FAERS Safety Report 8431710-7 (Version None)
Quarter: 2012Q2

REPORT INFORMATION
  Report Type: 
  Country: None (occurrence: None)
  Receive Date: 20120613
  Receipt Date: 20120605
  Transmission Date: 20120825
  Serious: Yes (Other)
  Sender: FDA-Public Use
  Company Number: JP-JNJFOC-20120112335

PATIENT
  Sex: Male
  Weight: 65 kg

DRUGS (5)
  1. TRAMADOL HYDROCHLORIDE AND ACETAMINOPHEN [Suspect]
     Indication: PAIN
     Dosage: 1 PER DAY
     Route: 048
     Dates: start: 20110822, end: 20110920
  2. MECOBALAMIN [Concomitant]
     Indication: PAIN
     Dosage: 1500 UG X 1 PER 1 DAY
     Route: 048
     Dates: start: 20110415
  3. AMLODIPINE BESYLATE [Concomitant]
     Indication: HYPERTENSION
     Dosage: 5 MG X 1 PER 1 DAY
     Route: 048
     Dates: start: 20090124
  4. TRAMADOL HYDROCHLORIDE AND ACETAMINOPHEN [Suspect]
     Dosage: 1 PER DAY
     Route: 048
     Dates: start: 20110921, end: 20111121
  5. MAIBASTAN [Concomitant]
     Indication: HYPERCHOLESTEROLAEMIA
     Dosage: 5 MG X 1 PER 1 DAY
     Route: 048
     Dates: start: 20091124

REACTIONS (2)
  - GASTRIC ULCER [None]
  - INADEQUATE ANALGESIA [None]
